FAERS Safety Report 13902309 (Version 1)
Quarter: 2017Q3

REPORT INFORMATION
  Report Type: Spontaneous
  Country: US (occurrence: US)
  Receive Date: 20170824
  Receipt Date: 20170824
  Transmission Date: 20171127
  Serious: Yes (Hospitalization, Other)
  Sender: FDA-Public Use
  Company Number: US-KADMON PHARMACEUTICALS, LLC-KAD201708-000915

PATIENT
  Age: 48 Year
  Sex: Male

DRUGS (4)
  1. TELAPREVIR [Concomitant]
     Active Substance: TELAPREVIR
  2. RIBASPHERE [Suspect]
     Active Substance: RIBAVIRIN
  3. RIBASPHERE [Suspect]
     Active Substance: RIBAVIRIN
     Indication: HEPATITIS C
     Route: 048
     Dates: start: 20121214
  4. PEGASYS [Suspect]
     Active Substance: PEGINTERFERON ALFA-2A
     Indication: HEPATITIS C
     Route: 058
     Dates: start: 20121214

REACTIONS (8)
  - Urinary retention [Unknown]
  - Nephrolithiasis [Recovered/Resolved]
  - Renal pain [Unknown]
  - Dry mouth [Unknown]
  - Renal failure [Unknown]
  - Blood iron decreased [Unknown]
  - Diarrhoea [Unknown]
  - Abdominal distension [Unknown]

NARRATIVE: CASE EVENT DATE: 20130117
